FAERS Safety Report 9207630 (Version 2)
Quarter: 2013Q2

REPORT INFORMATION
  Report Type: Spontaneous
  Country: US (occurrence: US)
  Receive Date: 20130403
  Receipt Date: 20130405
  Transmission Date: 20140414
  Serious: Yes (Hospitalization)
  Sender: FDA-Public Use
  Company Number: US-GILEAD-2013-0072532

PATIENT
  Age: 59 Year
  Sex: Female

DRUGS (3)
  1. LETAIRIS [Suspect]
     Indication: PULMONARY HYPERTENSION
     Dosage: 5 MG, QD
     Dates: start: 20121121
  2. LETAIRIS [Suspect]
     Indication: SCLERODERMA
     Dates: start: 20121120
  3. WELLBUTRIN [Concomitant]

REACTIONS (2)
  - Epistaxis [Unknown]
  - Thyroid disorder [Unknown]
